FAERS Safety Report 5120890-7 (Version None)
Quarter: 2006Q4

REPORT INFORMATION
  Report Type: 
  Country: None (occurrence: None)
  Receive Date: 20061005
  Receipt Date: 20060922
  Transmission Date: 20070319
  Serious: Yes (Death, Hospitalization)
  Sender: FDA-Public Use
  Company Number: PHHO2006BR15994

PATIENT
  Age: 59 Year
  Sex: Female

DRUGS (4)
  1. ZELMAC [Suspect]
     Route: 048
  2. SERETIDE [Concomitant]
     Indication: ASTHMA
  3. OMEPRAZOLE [Concomitant]
     Indication: GASTRITIS
  4. ACETAMINOPHEN [Concomitant]
     Indication: HEADACHE

REACTIONS (4)
  - GASTROINTESTINAL HAEMORRHAGE [None]
  - ISCHAEMIA [None]
  - MALAISE [None]
  - THROMBOSIS [None]
